FAERS Safety Report 4959400-3 (Version None)
Quarter: 2006Q1

REPORT INFORMATION
  Report Type: 
  Country: None (occurrence: None)
  Receive Date: 20060331
  Receipt Date: 20050503
  Transmission Date: 20060701
  Serious: Yes (Hospitalization)
  Sender: FDA-Public Use
  Company Number: US-MERCK-0512USA01200

PATIENT
  Age: 68 Year
  Sex: Female
  Weight: 61 kg

DRUGS (13)
  1. VIOXX [Suspect]
     Indication: OSTEOARTHRITIS
     Route: 048
     Dates: start: 20030129
  2. VIOXX [Suspect]
     Route: 048
     Dates: end: 20030205
  3. VIOXX [Suspect]
     Indication: ARTHRALGIA
     Route: 048
     Dates: start: 20030129
  4. VIOXX [Suspect]
     Route: 048
     Dates: end: 20030205
  5. IBUPROFEN [Suspect]
     Route: 065
     Dates: start: 20030101
  6. ATROVENT [Concomitant]
     Route: 065
  7. MECLIZINE [Concomitant]
     Route: 065
  8. GEMFIBROZIL [Concomitant]
     Route: 065
  9. PRAVACHOL [Concomitant]
     Route: 065
  10. GLUCOPHAGE [Concomitant]
     Route: 065
  11. ASPIRIN [Concomitant]
     Route: 065
  12. CENTRUM [Concomitant]
     Route: 065
  13. PROPRANOLOL HYDROCHLORIDE [Concomitant]
     Route: 065

REACTIONS (19)
  - ANAEMIA [None]
  - ASTHENIA [None]
  - BLOOD GLUCOSE FLUCTUATION [None]
  - BLOOD TRIGLYCERIDES INCREASED [None]
  - CARDIAC MURMUR [None]
  - CONSTIPATION [None]
  - DIZZINESS [None]
  - FATIGUE [None]
  - GASTRIC POLYPS [None]
  - HYPOTENSION [None]
  - HYPOVOLAEMIA [None]
  - MITRAL VALVE INCOMPETENCE [None]
  - MIXED HYPERLIPIDAEMIA [None]
  - NAUSEA [None]
  - STOMACH DISCOMFORT [None]
  - SYNCOPE [None]
  - TRICUSPID VALVE INCOMPETENCE [None]
  - UPPER GASTROINTESTINAL HAEMORRHAGE [None]
  - VARICES OESOPHAGEAL [None]
